FAERS Safety Report 6985886-9 (Version None)
Quarter: 2010Q3

REPORT INFORMATION
  Report Type: 
  Country: None (occurrence: None)
  Receive Date: 20100915
  Receipt Date: 20100803
  Transmission Date: 20110219
  Serious: Yes (Death, Other)
  Sender: FDA-Public Use
  Company Number: US-BAXTER-2009BH003454

PATIENT
  Age: 47 Year
  Sex: Male
  Weight: 92 kg

DRUGS (40)
  1. HEPARIN SODIUM INJECTION [Suspect]
     Indication: STENT PLACEMENT
     Route: 040
     Dates: start: 20080309, end: 20080309
  2. HEPARIN SODIUM INJECTION [Suspect]
     Indication: CATHETERISATION CARDIAC
     Route: 040
     Dates: start: 20080309, end: 20080309
  3. HEPARIN SODIUM INJECTION [Suspect]
     Indication: ANGIOPLASTY
     Route: 040
     Dates: start: 20080309, end: 20080309
  4. HEPARIN SODIUM INJECTION [Suspect]
     Indication: MYOCARDIAL INFARCTION
     Route: 040
     Dates: start: 20080309, end: 20080309
  5. HEPARIN SODIUM INJECTION [Suspect]
     Route: 040
     Dates: start: 20080309, end: 20080309
  6. HEPARIN SODIUM INJECTION [Suspect]
     Route: 040
     Dates: start: 20080309, end: 20080309
  7. HEPARIN SODIUM INJECTION [Suspect]
     Route: 040
     Dates: start: 20080309, end: 20080309
  8. HEPARIN SODIUM INJECTION [Suspect]
     Route: 040
     Dates: start: 20080309, end: 20080309
  9. HEPARIN SODIUM INJECTION [Suspect]
     Route: 040
     Dates: start: 20080309, end: 20080309
  10. HEPARIN SODIUM INJECTION [Suspect]
     Route: 040
     Dates: start: 20080309, end: 20080309
  11. HEPARIN SODIUM INJECTION [Suspect]
     Route: 040
     Dates: start: 20080309, end: 20080309
  12. HEPARIN SODIUM INJECTION [Suspect]
     Route: 040
     Dates: start: 20080309, end: 20080309
  13. HEPARIN SODIUM INJECTION [Suspect]
     Route: 040
     Dates: start: 20080311, end: 20080311
  14. HEPARIN SODIUM INJECTION [Suspect]
     Route: 040
     Dates: start: 20080311, end: 20080311
  15. HEPARIN SODIUM INJECTION [Suspect]
     Route: 040
     Dates: start: 20080311, end: 20080311
  16. HEPARIN SODIUM INJECTION [Suspect]
     Route: 040
     Dates: start: 20080311, end: 20080311
  17. HEPARIN SODIUM INJECTION [Suspect]
     Route: 040
     Dates: start: 20080311, end: 20080311
  18. HEPARIN SODIUM INJECTION [Suspect]
     Route: 040
     Dates: start: 20080311, end: 20080311
  19. HEPARIN SODIUM INJECTION [Suspect]
     Route: 040
     Dates: start: 20080311, end: 20080311
  20. HEPARIN SODIUM INJECTION [Suspect]
     Route: 040
     Dates: start: 20080311, end: 20080311
  21. HEPARIN SODIUM INJECTION [Suspect]
     Route: 040
     Dates: start: 20080313, end: 20080313
  22. HEPARIN SODIUM INJECTION [Suspect]
     Route: 040
     Dates: start: 20080313, end: 20080313
  23. HEPARIN SODIUM INJECTION [Suspect]
     Route: 040
     Dates: start: 20080313, end: 20080313
  24. HEPARIN SODIUM INJECTION [Suspect]
     Route: 040
     Dates: start: 20080313, end: 20080313
  25. HEPARIN SODIUM 5,000 UNITS IN DEXTROSE 5% [Suspect]
     Indication: ACUTE MYOCARDIAL INFARCTION
     Route: 042
     Dates: start: 20080311, end: 20080311
  26. HEPARIN SODIUM 5,000 UNITS IN DEXTROSE 5% [Suspect]
     Route: 042
     Dates: start: 20080311, end: 20080312
  27. HEPARIN SODIUM 5,000 UNITS IN DEXTROSE 5% [Suspect]
     Route: 042
     Dates: start: 20080313, end: 20080313
  28. HEPARIN SODIUM 5,000 UNITS IN DEXTROSE 5% [Suspect]
     Route: 042
     Dates: start: 20080313, end: 20080315
  29. ASPIRIN [Suspect]
     Indication: PRODUCT USED FOR UNKNOWN INDICATION
     Route: 048
     Dates: start: 20080309, end: 20080301
  30. ASPIRIN [Concomitant]
     Route: 065
  31. FISH OIL [Concomitant]
     Indication: PRODUCT USED FOR UNKNOWN INDICATION
     Route: 065
  32. PRILOSEC [Concomitant]
     Indication: PRODUCT USED FOR UNKNOWN INDICATION
     Route: 065
  33. LOPRESSOR [Concomitant]
     Indication: PRODUCT USED FOR UNKNOWN INDICATION
     Route: 042
  34. NITROSTAT [Concomitant]
     Indication: PRODUCT USED FOR UNKNOWN INDICATION
     Route: 060
  35. NITROGLYCERIN [Concomitant]
     Indication: PRODUCT USED FOR UNKNOWN INDICATION
     Route: 042
  36. NIACIN [Concomitant]
     Indication: PRODUCT USED FOR UNKNOWN INDICATION
     Route: 048
  37. MULTI-VITAMINS [Concomitant]
     Indication: PRODUCT USED FOR UNKNOWN INDICATION
     Route: 065
  38. VITAMIN B COMPLEX CAP [Concomitant]
     Indication: PRODUCT USED FOR UNKNOWN INDICATION
     Route: 065
  39. GLUCOSAMINE COMPLEX [Concomitant]
     Indication: PRODUCT USED FOR UNKNOWN INDICATION
     Route: 065
  40. GINSENG [Concomitant]
     Indication: PRODUCT USED FOR UNKNOWN INDICATION
     Route: 065

REACTIONS (21)
  - ACUTE RESPIRATORY DISTRESS SYNDROME [None]
  - BLOOD PRESSURE DECREASED [None]
  - BRADYCARDIA [None]
  - CARDIOGENIC SHOCK [None]
  - CORONARY ARTERY DISEASE [None]
  - ESCHERICHIA SEPSIS [None]
  - HAEMORRHAGE [None]
  - HEPATIC FUNCTION ABNORMAL [None]
  - HYPOTENSION [None]
  - HYPOXIA [None]
  - ISCHAEMIC HEPATITIS [None]
  - MULTI-ORGAN FAILURE [None]
  - MYOCARDIAL INFARCTION [None]
  - PNEUMONIA ASPIRATION [None]
  - PULMONARY OEDEMA [None]
  - RENAL FAILURE ACUTE [None]
  - RESPIRATORY FAILURE [None]
  - SEPSIS SYNDROME [None]
  - SEPTIC SHOCK [None]
  - STREPTOCOCCAL SEPSIS [None]
  - VOMITING [None]
